FAERS Safety Report 9234918 (Version 1)
Quarter: 2013Q2

REPORT INFORMATION
  Report Type: Spontaneous
  Country: US (occurrence: US)
  Receive Date: 20130416
  Receipt Date: 20130416
  Transmission Date: 20140414
  Serious: No
  Sender: FDA-Public Use
  Company Number: US-BANPHARM-20120262

PATIENT
  Age: 84 Year
  Sex: Male
  Weight: 55.99 kg

DRUGS (4)
  1. ALEVE LIQUID GELS 220 MG [Suspect]
     Indication: BACK PAIN
     Dosage: #3  DF, 2 IN THE MORNING., 1 IN THE EVENING,
     Route: 048
     Dates: start: 20121011, end: 20121015
  2. 2 DIFFERENT BLOOD PRESSURE MEDICATIONS [Concomitant]
  3. LIPITOR [Concomitant]
  4. VITAMINS [Concomitant]

REACTIONS (1)
  - Drug ineffective [Unknown]
